FAERS Safety Report 8197295-8 (Version None)
Quarter: 2012Q1

REPORT INFORMATION
  Report Type: 
  Country: None (occurrence: None)
  Receive Date: 20120309
  Receipt Date: 20120229
  Transmission Date: 20120608
  Serious: Yes (Death, Other)
  Sender: FDA-Public Use
  Company Number: BR-SANOFI-AVENTIS-2012SA013525

PATIENT
  Age: 65 Year
  Sex: Female

DRUGS (4)
  1. ETANERCEPT [Suspect]
     Indication: RHEUMATOID ARTHRITIS
     Route: 058
  2. PREDNISONE [Suspect]
     Route: 065
  3. ARAVA [Suspect]
     Route: 065
  4. LOSARTAN POTASSIUM [Concomitant]

REACTIONS (4)
  - ASTHENIA [None]
  - HYPERTENSION [None]
  - INFARCTION [None]
  - CHEST PAIN [None]
